FAERS Safety Report 8391167-1 (Version None)
Quarter: 2012Q2

REPORT INFORMATION
  Report Type: 
  Country: None (occurrence: None)
  Receive Date: 20120517
  Receipt Date: 20120511
  Transmission Date: 20120825
  Serious: Yes (Hospitalization)
  Sender: FDA-Public Use
  Company Number: 2012SP022488

PATIENT
  Age: 45 Year
  Sex: Male

DRUGS (1)
  1. SAPHRIS [Suspect]
     Indication: BIPOLAR I DISORDER
     Dosage: QD;SL
     Route: 060
     Dates: start: 20120401, end: 20120501

REACTIONS (5)
  - DRUG INEFFECTIVE [None]
  - MANIA [None]
  - DELUSION [None]
  - CONDITION AGGRAVATED [None]
  - GRANDIOSITY [None]
